FAERS Safety Report 7765356-0 (Version None)
Quarter: 2011Q3

REPORT INFORMATION
  Report Type: 
  Country: None (occurrence: None)
  Receive Date: 20110921
  Receipt Date: 20110912
  Transmission Date: 20111222
  Serious: Yes (Hospitalization)
  Sender: FDA-Public Use
  Company Number: CHPA2011US12319

PATIENT
  Age: 74 Year
  Sex: Female

DRUGS (1)
  1. TRANSDERM SCOP [Suspect]
     Indication: MOTION SICKNESS
     Dosage: 1 DF BEHIND EACH EAR
     Route: 062
     Dates: start: 20110909, end: 20110910

REACTIONS (4)
  - CONFUSIONAL STATE [None]
  - OVERDOSE [None]
  - TREMOR [None]
  - HALLUCINATION, VISUAL [None]
